FAERS Safety Report 22908072 (Version 2)
Quarter: 2024Q3

REPORT INFORMATION
  Report Type: Report from Study
  Country: CA (occurrence: CA)
  Receive Date: 20230905
  Receipt Date: 20240829
  Transmission Date: 20241017
  Serious: Yes (Other)
  Sender: GILEAD
  Company Number: CA-GLAXOSMITHKLINE-CA2023AMR116218

PATIENT
  Age: 41 Year
  Sex: Female

DRUGS (1)
  1. AMBRISENTAN [Suspect]
     Active Substance: AMBRISENTAN
     Indication: Pulmonary arterial hypertension
     Dosage: 10 MG, QD
     Route: 048
     Dates: start: 20180824

REACTIONS (7)
  - Kidney infection [Unknown]
  - Blood pressure decreased [Unknown]
  - Malaise [Unknown]
  - Dyspnoea [Unknown]
  - Inflammation [Unknown]
  - Feeling hot [Unknown]
  - Hyperhidrosis [Unknown]
